FAERS Safety Report 6167596-3 (Version None)
Quarter: 2009Q2

REPORT INFORMATION
  Report Type: 
  Country: None (occurrence: None)
  Receive Date: 20090424
  Receipt Date: 20090415
  Transmission Date: 20091009
  Serious: Yes (Hospitalization, Other)
  Sender: FDA-Public Use
  Company Number: US-AMGEN-QUU334724

PATIENT
  Sex: Female

DRUGS (10)
  1. ENBREL [Suspect]
     Indication: RHEUMATOID ARTHRITIS
     Route: 058
     Dates: start: 20080610
  2. METHOTREXATE [Concomitant]
     Route: 048
     Dates: start: 20040101
  3. FOSAMAX [Concomitant]
     Route: 048
     Dates: start: 20040101
  4. FOLIC ACID [Concomitant]
     Route: 048
     Dates: start: 20040101
  5. ALEVE [Concomitant]
     Dates: start: 20040101
  6. AVAPRO [Concomitant]
  7. NASONEX [Concomitant]
     Route: 045
  8. ASTELIN [Concomitant]
     Route: 045
  9. LEVOTHYROXINE SODIUM [Concomitant]
     Route: 048
  10. CALCIUM WITH VITAMIN D [Concomitant]

REACTIONS (5)
  - ARTHRALGIA [None]
  - BRONCHITIS [None]
  - CHRONIC OBSTRUCTIVE PULMONARY DISEASE [None]
  - HYPERTENSION [None]
  - PNEUMONIA [None]
